FAERS Safety Report 4678209-1 (Version None)
Quarter: 2005Q2

REPORT INFORMATION
  Report Type: 
  Country: None (occurrence: None)
  Receive Date: 20050601
  Receipt Date: 20050524
  Transmission Date: 20051028
  Serious: Yes (Hospitalization, Other)
  Sender: FDA-Public Use
  Company Number: PHBS2005IL07375

PATIENT
  Age: 10 Month
  Sex: Female

DRUGS (8)
  1. METHOTREXATE [Suspect]
     Indication: STEM CELL TRANSPLANT
     Route: 065
  2. FLUDARABINE [Suspect]
     Indication: STEM CELL TRANSPLANT
     Dosage: UNK, UNK
     Route: 065
  3. BUSULFAN [Suspect]
     Indication: STEM CELL TRANSPLANT
     Route: 065
  4. ATG [Suspect]
     Indication: STEM CELL TRANSPLANT
     Dosage: 10 MG/KG/D
     Route: 065
  5. CORTICOSTEROIDS [Suspect]
  6. CYCLOSPORINE [Suspect]
     Indication: STEM CELL TRANSPLANT
     Dosage: 3 MG/KG/D
     Route: 065
  7. SULFAMETHOXAZOLE + TRIMETHOPRIM [Suspect]
     Route: 065
  8. METHYLPREDNISOLONE [Suspect]

REACTIONS (14)
  - ACUTE RESPIRATORY DISTRESS SYNDROME [None]
  - BLOOD LACTATE DEHYDROGENASE INCREASED [None]
  - CLOSTRIDIUM COLITIS [None]
  - ESCHERICHIA SEPSIS [None]
  - GRAFT VERSUS HOST DISEASE [None]
  - INTUBATION [None]
  - LIFE SUPPORT [None]
  - LUNG DISORDER [None]
  - OXYGEN SATURATION DECREASED [None]
  - PANCYTOPENIA [None]
  - PNEUMOCYSTIS JIROVECI PNEUMONIA [None]
  - PYREXIA [None]
  - TACHYPNOEA [None]
  - VENOOCCLUSIVE LIVER DISEASE [None]
